FAERS Safety Report 6820256-5 (Version None)
Quarter: 2010Q3

REPORT INFORMATION
  Report Type: 
  Country: None (occurrence: None)
  Receive Date: 20100707
  Receipt Date: 20100706
  Transmission Date: 20110219
  Serious: Yes (Life-Threatening, Hospitalization)
  Sender: FDA-Public Use
  Company Number: GXKR2010DE07417

PATIENT
  Age: 95 Year
  Sex: Male

DRUGS (2)
  1. ACETYLSALICYLIC ACID SRT [Suspect]
     Indication: CORONARY ARTERY DISEASE
     Route: 048
  2. ISCOVER [Interacting]
     Indication: CORONARY ARTERY DISEASE
     Route: 048

REACTIONS (3)
  - HAEMORRHAGE [None]
  - MYASTHENIC SYNDROME [None]
  - PARAPLEGIA [None]
